FAERS Safety Report 13642675 (Version 4)
Quarter: 2017Q4

REPORT INFORMATION
  Report Type: Report from Study
  Country: CA (occurrence: CA)
  Receive Date: 20170612
  Receipt Date: 20171124
  Transmission Date: 20180320
  Serious: Yes (Hospitalization, Other)
  Sender: FDA-Public Use
  Company Number: PHHY2017CA082287

PATIENT
  Age: 73 Year
  Sex: Female

DRUGS (2)
  1. SANDOSTATIN [Suspect]
     Active Substance: OCTREOTIDE ACETATE
     Indication: ACROMEGALY
     Dosage: 100 UG, TID
     Route: 058
     Dates: start: 20161018
  2. SANDOSTATIN LAR DEPOT [Suspect]
     Active Substance: OCTREOTIDE ACETATE
     Indication: ACROMEGALY
     Dosage: 20 MG, QMO, EVERY 4 WEEKS
     Route: 030
     Dates: start: 20151124

REACTIONS (7)
  - Vaginal haemorrhage [Unknown]
  - Rectal haemorrhage [Unknown]
  - Bladder prolapse [Unknown]
  - Gastrointestinal disorder [Unknown]
  - Blood pressure systolic increased [Unknown]
  - Blood pressure diastolic decreased [Unknown]
  - Pain [Unknown]

NARRATIVE: CASE EVENT DATE: 20171107
